FAERS Safety Report 18973151 (Version 1)
Quarter: 2021Q1

REPORT INFORMATION
  Report Type: Spontaneous
  Country: US (occurrence: US)
  Receive Date: 20210304
  Receipt Date: 20210304
  Transmission Date: 20210420
  Serious: No
  Sender: FDA-Public Use
  Company Number: None

PATIENT
  Age: 73 Year
  Sex: Male

DRUGS (1)
  1. BUDESONIDE (BUDESONIDE 3MG CAP,EC) [Suspect]
     Active Substance: BUDESONIDE
     Indication: COLITIS MICROSCOPIC
     Dates: start: 20200902, end: 20201202

REACTIONS (5)
  - Hyperglycaemia [None]
  - Anxiety [None]
  - Hypertension [None]
  - Agitation [None]
  - Irritability [None]

NARRATIVE: CASE EVENT DATE: 20201202
